FAERS Safety Report 23699289 (Version 1)
Quarter: 2024Q2

REPORT INFORMATION
  Report Type: Other
  Country: CN (occurrence: CN)
  Receive Date: 20240402
  Receipt Date: 20240402
  Transmission Date: 20240716
  Serious: Yes (Other)
  Sender: FDA-Public Use
  Company Number: CN-002147023-NVSC2024CN062760

PATIENT

DRUGS (1)
  1. RUXOLITINIB [Suspect]
     Active Substance: RUXOLITINIB
     Indication: Bone marrow transplant
     Dosage: 5 MG, QD
     Route: 048
     Dates: start: 20240302, end: 20240307

REACTIONS (7)
  - Mouth ulceration [Recovering/Resolving]
  - Pyrexia [Recovering/Resolving]
  - Hyperpyrexia [Recovering/Resolving]
  - Hypokalaemia [Recovering/Resolving]
  - Pityriasis rosea [Recovering/Resolving]
  - Pruritus [Recovering/Resolving]
  - Rash [Recovering/Resolving]

NARRATIVE: CASE EVENT DATE: 20240303
